FAERS Safety Report 6666218-2 (Version None)
Quarter: 2010Q2

REPORT INFORMATION
  Report Type: 
  Country: None (occurrence: None)
  Receive Date: 20100402
  Receipt Date: 20100323
  Transmission Date: 20101027
  Serious: Yes (Hospitalization)
  Sender: FDA-Public Use
  Company Number: US-WATSON-2010-03780

PATIENT
  Sex: Female

DRUGS (2)
  1. METOPROLOL SUCCINATE (WATSON LABORATORIES) [Suspect]
     Indication: SUPRAVENTRICULAR TACHYCARDIA
     Route: 065
  2. TOPROL-XL [Suspect]
     Indication: SUPRAVENTRICULAR TACHYCARDIA
     Dosage: UNK
     Route: 065

REACTIONS (4)
  - DRUG INEFFECTIVE [None]
  - GAIT DISTURBANCE [None]
  - INSOMNIA [None]
  - SUPRAVENTRICULAR TACHYCARDIA [None]
